FAERS Safety Report 10075987 (Version 1)
Quarter: 2014Q2

REPORT INFORMATION
  Report Type: Report from Study
  Country: HU (occurrence: HU)
  Receive Date: 20140414
  Receipt Date: 20140414
  Transmission Date: 20141212
  Serious: Yes (Other)
  Sender: FDA-Public Use
  Company Number: HU-MERCK-1404HUN005382

PATIENT
  Sex: 0

DRUGS (2)
  1. ERTAPENEM SODIUM [Suspect]
     Indication: DIABETIC FOOT INFECTION
     Dosage: 1 G IN 100 ML NORMAL SALINE, OVER 30 MIN
     Route: 042
  2. VANCOMYCIN [Concomitant]
     Indication: DIABETIC FOOT INFECTION

REACTIONS (1)
  - Osteomyelitis [Unknown]
